FAERS Safety Report 10367879 (Version 2)
Quarter: 2014Q3

REPORT INFORMATION
  Report Type: Spontaneous
  Country: US (occurrence: US)
  Receive Date: 20140807
  Receipt Date: 20140912
  Transmission Date: 20150326
  Serious: No
  Sender: FDA-Public Use
  Company Number: US-PFIZER INC-2014219412

PATIENT
  Age: 35 Year
  Sex: Female
  Weight: 69.84 kg

DRUGS (3)
  1. ALPRAZOLAM. [Suspect]
     Active Substance: ALPRAZOLAM
     Indication: ANXIETY
     Dosage: 2 MG, 1X/DAY
     Dates: start: 201402, end: 2014
  2. SEROQUEL XR [Concomitant]
     Active Substance: QUETIAPINE FUMARATE
     Dosage: 200 MG, 1X/DAY
  3. ALPRAZOLAM. [Suspect]
     Active Substance: ALPRAZOLAM
     Dosage: 2 MG, UNK
     Dates: start: 2014, end: 20140801

REACTIONS (14)
  - Drug ineffective [Unknown]
  - Pruritus [Unknown]
  - Drug hypersensitivity [Unknown]
  - Suspected counterfeit product [Unknown]
  - Nasal congestion [Unknown]
  - Dysgeusia [Unknown]
  - Nausea [Unknown]
  - Malaise [Unknown]
  - Drug withdrawal syndrome [Unknown]
  - Muscle spasms [Unknown]
  - Product taste abnormal [Unknown]
  - Poor quality sleep [Unknown]
  - Urticaria [Unknown]
  - Dyspnoea [Unknown]

NARRATIVE: CASE EVENT DATE: 2014
